FAERS Safety Report 8079995 (Version 3)
Quarter: 2013Q3

REPORT INFORMATION
  Report Type: Spontaneous
  Country: CA (occurrence: CA)
  Receive Date: 20110808
  Receipt Date: 20130716
  Transmission Date: 20140515
  Serious: Yes (Other)
  Sender: FDA-Public Use
  Company Number: CA-UCBSA-037545

PATIENT
  Age: 47 Year
  Sex: Female
  Weight: 66 kg

DRUGS (13)
  1. CIMZIA [Suspect]
     Indication: RHEUMATOID ARTHRITIS
     Route: 058
     Dates: start: 201006
  2. CIMZIA [Suspect]
     Indication: RHEUMATOID ARTHRITIS
     Route: 058
     Dates: start: 201107, end: 201201
  3. CIMZIA [Suspect]
     Indication: RHEUMATOID ARTHRITIS
     Route: 058
     Dates: start: 20120207, end: 20120221
  4. MTX [Suspect]
     Indication: RHEUMATOID ARTHRITIS
     Route: 058
     Dates: start: 200504
  5. MTX [Suspect]
     Indication: RHEUMATOID ARTHRITIS
     Route: 048
  6. IMOVANE [Concomitant]
     Indication: PAIN
     Dosage: EVERY NIGHT AT BEDTIME
     Route: 048
  7. IMOVANE [Concomitant]
     Indication: RHEUMATOID ARTHRITIS
     Dosage: EVERY NIGHT AT BEDTIME
     Route: 048
  8. NAPROXEN [Concomitant]
     Indication: RHEUMATOID ARTHRITIS
     Route: 048
  9. PLAQUENIL [Concomitant]
     Indication: RHEUMATOID ARTHRITIS
     Route: 048
  10. PREDNISONE [Concomitant]
     Indication: RHEUMATOID ARTHRITIS
     Route: 048
  11. FOSAMAX [Concomitant]
     Indication: OSTEOPOROSIS
     Route: 048
  12. NOVOTRYPTIN [Concomitant]
     Indication: SLEEP DISORDER
     Route: 048
  13. ACTONEL [Concomitant]
     Indication: OSTEOPOROSIS

REACTIONS (7)
  - Weight decreased [Not Recovered/Not Resolved]
  - Respiratory tract infection [Recovering/Resolving]
  - Cough [Not Recovered/Not Resolved]
  - Chest X-ray abnormal [Not Recovered/Not Resolved]
  - Malaise [Unknown]
  - Back pain [Unknown]
  - Chest pain [Not Recovered/Not Resolved]
